FAERS Safety Report 4617080-0 (Version None)
Quarter: 2005Q1

REPORT INFORMATION
  Report Type: 
  Country: None (occurrence: None)
  Receive Date: 20050323
  Receipt Date: 20040504
  Transmission Date: 20050727
  Serious: Yes (Other)
  Sender: FDA-Public Use
  Company Number: GB-ROCHE-366422

PATIENT
  Age: 32 Year
  Sex: Female
  Weight: 60 kg

DRUGS (4)
  1. CELLCEPT [Suspect]
     Indication: AUTOIMMUNE HEPATITIS
     Route: 048
     Dates: start: 20040315, end: 20040429
  2. PREDNISOLONE [Concomitant]
     Indication: AUTOIMMUNE HEPATITIS
     Route: 048
     Dates: start: 20020615
  3. RISEDRONATE SODIUM [Concomitant]
     Indication: OSTEOPOROSIS
     Route: 048
     Dates: start: 20040115, end: 20040429
  4. MERCAPTOPURINE [Concomitant]
     Indication: AUTOIMMUNE HEPATITIS
     Route: 048
     Dates: start: 20040215, end: 20040315

REACTIONS (3)
  - ABORTION SPONTANEOUS [None]
  - DRUG EXPOSURE DURING PREGNANCY [None]
  - PREGNANCY [None]
